FAERS Safety Report 4646327-X (Version None)
Quarter: 2005Q2

REPORT INFORMATION
  Report Type: 
  Country: None (occurrence: None)
  Receive Date: 20050425
  Receipt Date: 20050414
  Transmission Date: 20051028
  Serious: Yes (Other)
  Sender: FDA-Public Use
  Company Number: MED000083

PATIENT
  Age: 51 Year
  Sex: Male

DRUGS (6)
  1. LACTATED RINGER'S [Suspect]
     Indication: PREOPERATIVE CARE
     Dosage: INTRAVENOUS
     Route: 042
  2. TOPRAL [Concomitant]
  3. PLAVIX [Concomitant]
  4. DIOVANE HCT [Concomitant]
  5. LIPITOR [Concomitant]
  6. ASPIRIN [Concomitant]

REACTIONS (3)
  - ERYTHEMA [None]
  - INFUSION RELATED REACTION [None]
  - URTICARIA [None]
